FAERS Safety Report 24718954 (Version 4)
Quarter: 2025Q4

REPORT INFORMATION
  Report Type: Report from Study
  Country: US (occurrence: US)
  Receive Date: 20241210
  Receipt Date: 20251224
  Transmission Date: 20260117
  Serious: No
  Sender: PFIZER
  Company Number: US-PFIZER INC-PV202400159843

PATIENT
  Age: 80 Year
  Sex: Female

DRUGS (2)
  1. TUKYSA [Suspect]
     Active Substance: TUCATINIB
     Dosage: 150 MG
  2. TUKYSA [Suspect]
     Active Substance: TUCATINIB
     Dosage: TWO 150MG TABLETS TWICE DAILY

REACTIONS (4)
  - Memory impairment [Unknown]
  - Pain in extremity [Unknown]
  - Hypoaesthesia [Unknown]
  - Urinary tract infection [Unknown]
